FAERS Safety Report 6016647-5 (Version None)
Quarter: 2008Q4

REPORT INFORMATION
  Report Type: 
  Country: None (occurrence: None)
  Receive Date: 20081222
  Receipt Date: 20081210
  Transmission Date: 20090506
  Serious: Yes (Other)
  Sender: FDA-Public Use
  Company Number: US-PFIZER INC-2008151632

PATIENT
  Sex: Female
  Weight: 93.424 kg

DRUGS (1)
  1. GEODON [Suspect]
     Indication: PSYCHOTIC DISORDER
     Dosage: INTERVAL: EVERY DAY, TDD: 160 MG
     Route: 048
     Dates: start: 20080701

REACTIONS (5)
  - DRUG INTOLERANCE [None]
  - ILL-DEFINED DISORDER [None]
  - MITRAL VALVE PROLAPSE [None]
  - SEDATION [None]
  - TARDIVE DYSKINESIA [None]
